FAERS Safety Report 5866849-3 (Version None)
Quarter: 2008Q3

REPORT INFORMATION
  Report Type: 
  Country: None (occurrence: None)
  Receive Date: 20080902
  Receipt Date: 20080821
  Transmission Date: 20090109
  Serious: Yes (Other)
  Sender: FDA-Public Use
  Company Number: FR-ROCHE-582388

PATIENT
  Sex: Male
  Weight: 37 kg

DRUGS (3)
  1. CELLCEPT [Suspect]
     Indication: DRUG USE FOR UNKNOWN INDICATION
     Route: 048
     Dates: start: 20010101
  2. PROGRAF [Suspect]
     Indication: DRUG USE FOR UNKNOWN INDICATION
     Route: 048
     Dates: start: 20010101
  3. CORTICOSTEROIDS [Concomitant]
     Dosage: DRUG: CORTICOIDS.
     Dates: end: 20020603

REACTIONS (3)
  - BRONCHIAL HYPERREACTIVITY [None]
  - DELAYED PUBERTY [None]
  - MULTIPLE ALLERGIES [None]
